FAERS Safety Report 9349720 (Version 1)
Quarter: 2013Q2

REPORT INFORMATION
  Report Type: Report from Study
  Country: FR (occurrence: FR)
  Receive Date: 20130614
  Receipt Date: 20130614
  Transmission Date: 20140414
  Serious: Yes (Other)
  Sender: FDA-Public Use
  Company Number: FR-CELGENEUS-056-21880-13060766

PATIENT
  Age: 79 Year
  Sex: Female

DRUGS (7)
  1. REVLIMID\PLACEBO [Suspect]
     Indication: B-CELL LYMPHOMA
     Dosage: 10 MILLIGRAM
     Route: 048
     Dates: start: 20120525
  2. REVLIMID\PLACEBO [Suspect]
     Dosage: 10 MILLIGRAM
     Route: 048
     Dates: start: 20130424, end: 20130520
  3. ASPIRINE [Concomitant]
     Indication: PRODUCT USED FOR UNKNOWN INDICATION
     Route: 065
  4. DAFALGAN CODEINE [Concomitant]
     Indication: BACK PAIN
     Route: 065
     Dates: start: 201211
  5. TANAKAN [Concomitant]
     Indication: DIZZINESS
     Route: 065
  6. CACIT VITAMINE D3 [Concomitant]
     Indication: SUPPLEMENTATION THERAPY
     Route: 065
  7. CLARADOL CAFEINE [Concomitant]
     Indication: BACK PAIN
     Route: 065
     Dates: start: 20120720

REACTIONS (1)
  - Basal cell carcinoma [Recovered/Resolved]
